FAERS Safety Report 26194750 (Version 1)
Quarter: 2025Q4

REPORT INFORMATION
  Report Type: Spontaneous
  Country: CN (occurrence: CN)
  Receive Date: 20251224
  Receipt Date: 20251224
  Transmission Date: 20260118
  Serious: Yes (Hospitalization)
  Sender: GLAXOSMITHKLINE
  Company Number: CN-GSK-CN2025GSK165694

PATIENT
  Age: 50 Year
  Sex: Female

DRUGS (3)
  1. ZEJULA [Suspect]
     Active Substance: NIRAPARIB
     Indication: Ovarian cancer
     Dosage: 100 MG, QD
  2. RISPERIDONE [Concomitant]
     Active Substance: RISPERIDONE
     Indication: Mental disorder
     Dosage: UNK
  3. VALPROATE SODIUM [Concomitant]
     Active Substance: VALPROATE SODIUM
     Indication: Mental disorder
     Dosage: UNK

REACTIONS (4)
  - Platelet count decreased [Recovering/Resolving]
  - Gingival bleeding [Unknown]
  - Haemoglobin decreased [Unknown]
  - Oedema peripheral [Unknown]

NARRATIVE: CASE EVENT DATE: 20251127
